FAERS Safety Report 13693641 (Version 2)
Quarter: 2018Q1

REPORT INFORMATION
  Report Type: Spontaneous
  Country: IT (occurrence: IT)
  Receive Date: 20170627
  Receipt Date: 20180227
  Transmission Date: 20180508
  Serious: Yes (Hospitalization, Other)
  Sender: FDA-Public Use
  Company Number: IT-GLAXOSMITHKLINE-IT2017GSK095872

PATIENT
  Age: 75 Year
  Sex: Male
  Weight: 70 kg

DRUGS (2)
  1. BREXIN [PIROXICAM] [Suspect]
     Active Substance: PIROXICAM BETADEX
     Indication: SCIATICA
     Dosage: 20 MG, QD
     Route: 048
     Dates: start: 20170321, end: 20170329
  2. DICLOFENAC [Suspect]
     Active Substance: DICLOFENAC
     Indication: SCIATICA
     Dosage: 100 MG, QD
     Route: 048
     Dates: start: 20170314, end: 20170320

REACTIONS (3)
  - Gastrointestinal haemorrhage [Recovering/Resolving]
  - Anaemia [Recovering/Resolving]
  - Gastric ulcer [Recovering/Resolving]

NARRATIVE: CASE EVENT DATE: 20170329
